FAERS Safety Report 20596871 (Version 1)
Quarter: 2022Q1

REPORT INFORMATION
  Report Type: Spontaneous
  Country: CN (occurrence: CN)
  Receive Date: 20220315
  Receipt Date: 20220315
  Transmission Date: 20220423
  Serious: Yes (Hospitalization, Other)
  Sender: FDA-Public Use
  Company Number: CN-BAYER-2022A034984

PATIENT
  Age: 82 Year
  Sex: Female

DRUGS (2)
  1. RIVAROXABAN [Suspect]
     Active Substance: RIVAROXABAN
     Indication: Anticoagulant therapy
     Dosage: 10 MG, QD
     Route: 048
     Dates: start: 202104, end: 20210626
  2. RIVAROXABAN [Suspect]
     Active Substance: RIVAROXABAN
     Indication: Deep vein thrombosis
     Route: 048

REACTIONS (22)
  - Iron deficiency anaemia [Unknown]
  - Angina pectoris [Unknown]
  - Left atrial enlargement [Unknown]
  - Cardiac hypertrophy [Unknown]
  - Ventricular internal diameter abnormal [Unknown]
  - Supraventricular extrasystoles [Unknown]
  - Cardiac failure chronic [Unknown]
  - Aortic valve calcification [Unknown]
  - Aortic valve incompetence [Unknown]
  - Mitral valve calcification [Unknown]
  - Mitral valve incompetence [Unknown]
  - Cardiac aneurysm [Unknown]
  - Pulmonary mass [Unknown]
  - Thyroid cyst [Unknown]
  - Hepatic cyst [Unknown]
  - Renal cyst [Unknown]
  - Gastrointestinal haemorrhage [Recovering/Resolving]
  - Melaena [Recovering/Resolving]
  - Prescribed underdose [Unknown]
  - Underdose [Unknown]
  - Inappropriate schedule of product administration [Unknown]
  - Product prescribing issue [Unknown]

NARRATIVE: CASE EVENT DATE: 20210401
